FAERS Safety Report 5430854-1 (Version None)
Quarter: 2007Q3

REPORT INFORMATION
  Report Type: 
  Country: None (occurrence: None)
  Receive Date: 20070830
  Receipt Date: 20070126
  Transmission Date: 20080115
  Serious: Yes (Life-Threatening, Other)
  Sender: FDA-Public Use
  Company Number: A0631739A

PATIENT
  Age: 57 Year
  Sex: Female

DRUGS (5)
  1. WELLBUTRIN XL [Suspect]
     Dosage: 150MG PER DAY
     Route: 048
     Dates: start: 20050101
  2. POTASSIUM CHLORIDE [Concomitant]
  3. HYDROCHLOROTHIAZIDE [Concomitant]
  4. PAROXETINE HYDROCHLORIDE [Concomitant]
  5. CYCLOBENZAPRINE HCL [Concomitant]

REACTIONS (1)
  - PERSONALITY CHANGE [None]
